FAERS Safety Report 9399223 (Version 2)
Quarter: 2013Q3

REPORT INFORMATION
  Report Type: Spontaneous
  Country: CN (occurrence: CN)
  Receive Date: 20130715
  Receipt Date: 20130725
  Transmission Date: 20140515
  Serious: Yes (Death, Other)
  Sender: FDA-Public Use
  Company Number: CN-AMGEN-CHNSP2013048848

PATIENT
  Age: 19 Year
  Sex: Male

DRUGS (1)
  1. ENBREL [Suspect]
     Indication: POISONING
     Dosage: 25 MG, 2 TIMES/WK
     Route: 065

REACTIONS (2)
  - Off label use [Fatal]
  - Poisoning [Fatal]
